FAERS Safety Report 7491422-3 (Version None)
Quarter: 2011Q2

REPORT INFORMATION
  Report Type: 
  Country: None (occurrence: None)
  Receive Date: 20110519
  Receipt Date: 20110506
  Transmission Date: 20111010
  Serious: Yes (Other)
  Sender: FDA-Public Use
  Company Number: PHHY2011HR40326

PATIENT
  Age: 38 Year
  Sex: Female

DRUGS (2)
  1. CLOZAPINE [Suspect]
     Dosage: 75 MG
  2. PROMAZINE [Concomitant]
     Dosage: 300 MG,

REACTIONS (10)
  - DELUSION [None]
  - HALLUCINATION, AUDITORY [None]
  - WEIGHT DECREASED [None]
  - SOCIAL AVOIDANT BEHAVIOUR [None]
  - ASTHENIA [None]
  - POOR PERSONAL HYGIENE [None]
  - FATIGUE [None]
  - DECREASED APPETITE [None]
  - MOBILITY DECREASED [None]
  - IRON DEFICIENCY ANAEMIA [None]
